FAERS Safety Report 5114822-5 (Version None)
Quarter: 2006Q3

REPORT INFORMATION
  Report Type: 
  Country: None (occurrence: None)
  Receive Date: 20060922
  Receipt Date: 20060911
  Transmission Date: 20061208
  Serious: Yes (Other)
  Sender: FDA-Public Use
  Company Number: 229750

PATIENT
  Age: 63 Year
  Sex: Female

DRUGS (1)
  1. RITUXAN [Suspect]
     Indication: NON-HODGKIN'S LYMPHOMA
     Dosage: Q4M
     Dates: start: 20000301, end: 20060814

REACTIONS (4)
  - ANAPHYLACTIC REACTION [None]
  - INJECTION SITE MASS [None]
  - MASS [None]
  - NIGHT SWEATS [None]
